FAERS Safety Report 4626671-2 (Version None)
Quarter: 2005Q2

REPORT INFORMATION
  Report Type: 
  Country: None (occurrence: None)
  Receive Date: 20050405
  Receipt Date: 20050324
  Transmission Date: 20051028
  Serious: Yes (Hospitalization, Other)
  Sender: FDA-Public Use
  Company Number: GB-JNJFOC-20050305707

PATIENT
  Sex: Female
  Weight: 69 kg

DRUGS (7)
  1. REMICADE [Suspect]
     Indication: RHEUMATOID ARTHRITIS
     Route: 042
     Dates: start: 20040604
  2. METHOTREXATE [Concomitant]
  3. PREDNISOLONE [Concomitant]
  4. LEDERFEN [Concomitant]
  5. OMERPRAZOLE [Concomitant]
  6. PAROXETINE HCL [Concomitant]
  7. PARACETAMOL [Concomitant]

REACTIONS (1)
  - ASTHMA [None]
